FAERS Safety Report 6064644-6 (Version None)
Quarter: 2009Q1

REPORT INFORMATION
  Report Type: 
  Country: None (occurrence: None)
  Receive Date: 20090204
  Receipt Date: 20080221
  Transmission Date: 20090719
  Serious: No
  Sender: FDA-Public Use
  Company Number: A0711001A

PATIENT
  Sex: Female

DRUGS (2)
  1. ARIXTRA [Suspect]
  2. NO CONCURRENT MEDICATION [Concomitant]

REACTIONS (1)
  - INTERNATIONAL NORMALISED RATIO INCREASED [None]
